FAERS Safety Report 14355861 (Version 1)
Quarter: 2018Q1

REPORT INFORMATION
  Report Type: Spontaneous
  Country: US (occurrence: US)
  Receive Date: 20180104
  Receipt Date: 20180104
  Transmission Date: 20180509
  Serious: No
  Sender: FDA-Public Use
  Company Number: None

PATIENT
  Sex: Male
  Weight: 49.5 kg

DRUGS (3)
  1. VITAMIN [Concomitant]
     Active Substance: VITAMINS
  2. TESTOSTERONE TOPICAL SOLUTION [Suspect]
     Active Substance: TESTOSTERONE
     Indication: HYPOGONADISM
     Dosage: ?          QUANTITY:60 PUMP ACTUATION;?
     Route: 061
     Dates: start: 20171009, end: 20180104
  3. CALCIUM [Concomitant]
     Active Substance: CALCIUM

REACTIONS (2)
  - Drug effect decreased [None]
  - Product substitution issue [None]

NARRATIVE: CASE EVENT DATE: 20171120
